FAERS Safety Report 9804910 (Version 1)
Quarter: 2014Q1

REPORT INFORMATION
  Report Type: Spontaneous
  Country: AU (occurrence: AU)
  Receive Date: 20140108
  Receipt Date: 20140108
  Transmission Date: 20141002
  Serious: Yes (Other)
  Sender: FDA-Public Use
  Company Number: AU-JNJFOC-20140101833

PATIENT
  Sex: Female

DRUGS (1)
  1. NICORETTE ICY MINT GUM 2MG [Suspect]
     Indication: SMOKING CESSATION THERAPY
     Route: 048
     Dates: start: 201306

REACTIONS (1)
  - Palpitations [Unknown]
